FAERS Safety Report 7017624-8 (Version None)
Quarter: 2010Q3

REPORT INFORMATION
  Report Type: 
  Country: None (occurrence: None)
  Receive Date: 20100928
  Receipt Date: 20100916
  Transmission Date: 20110219
  Serious: Yes (Other)
  Sender: FDA-Public Use
  Company Number: NL-GENZYME-CLOF-1000992

PATIENT
  Sex: Male
  Weight: 74 kg

DRUGS (71)
  1. EVOLTRA [Suspect]
     Indication: ACUTE MYELOID LEUKAEMIA
     Dosage: 10 MG/M2, UNK
     Route: 042
     Dates: start: 20100519, end: 20100523
  2. AMSACRINE [Suspect]
     Indication: ACUTE MYELOID LEUKAEMIA
     Dosage: 120 MG/M2, UNK
     Route: 042
     Dates: start: 20100522, end: 20100524
  3. CYTARABINE [Suspect]
     Indication: ACUTE MYELOID LEUKAEMIA
     Dosage: 1000 MG/M2, UNK
     Route: 042
     Dates: start: 20100519, end: 20100524
  4. TRAMADOL [Concomitant]
     Indication: PRODUCT USED FOR UNKNOWN INDICATION
     Dosage: 200 MG, QD
     Route: 042
     Dates: start: 20100525, end: 20100525
  5. TRAMADOL [Concomitant]
     Dosage: 400 MG, QD
     Route: 042
     Dates: start: 20100526, end: 20100531
  6. TRAMADOL [Concomitant]
     Dosage: 600 MG, QD
     Route: 042
     Dates: start: 20100602, end: 20100605
  7. MORPHINE [Concomitant]
     Indication: PRODUCT USED FOR UNKNOWN INDICATION
     Dosage: 40 MG, QD
     Route: 042
     Dates: start: 20100606, end: 20100610
  8. MORPHINE [Concomitant]
     Dosage: 50 MG, QD
     Route: 042
     Dates: start: 20100611, end: 20100613
  9. MORPHINE [Concomitant]
     Dosage: 30 MG, QD
     Route: 042
     Dates: start: 20100615, end: 20100617
  10. MORPHINE [Concomitant]
     Dosage: 20 MG, QD
     Route: 042
     Dates: start: 20100618, end: 20100620
  11. MORPHINE [Concomitant]
     Dosage: 10 MG, QD
     Route: 042
     Dates: start: 20100621, end: 20100621
  12. MORPHINE [Concomitant]
     Dosage: 10 MG, PRN
     Route: 058
     Dates: start: 20100607, end: 20100621
  13. RANITIDINE [Concomitant]
     Indication: PRODUCT USED FOR UNKNOWN INDICATION
     Dosage: 300 MG, QD
     Route: 048
     Dates: start: 20100518, end: 20100521
  14. RANITIDINE [Concomitant]
     Dosage: 150 MG, QD
     Route: 048
     Dates: start: 20100522, end: 20100522
  15. PANTOPRAZOLE [Concomitant]
     Indication: PRODUCT USED FOR UNKNOWN INDICATION
     Dosage: 40 MG, QD
     Route: 048
     Dates: start: 20100519, end: 20100525
  16. ALIZAPRIDE [Concomitant]
     Indication: PRODUCT USED FOR UNKNOWN INDICATION
     Dosage: 300 MG, PRN
     Route: 040
     Dates: start: 20100519, end: 20100621
  17. ONDANSETRON [Concomitant]
     Indication: PRODUCT USED FOR UNKNOWN INDICATION
     Dosage: 8 MG, QD
     Route: 048
     Dates: start: 20100518, end: 20100518
  18. ONDANSETRON [Concomitant]
     Dosage: 16 MG, QD
     Route: 048
     Dates: start: 20100519, end: 20100524
  19. ADENOSINE [Concomitant]
     Indication: PRODUCT USED FOR UNKNOWN INDICATION
     Dosage: 1 UNK, QD
     Route: 048
     Dates: start: 20100519, end: 20100604
  20. ASCORBIC ACID [Concomitant]
     Indication: PRODUCT USED FOR UNKNOWN INDICATION
     Dosage: 1 G, 1X/W
     Route: 042
     Dates: start: 20100524, end: 20100621
  21. PYRIDOXINE HCL [Concomitant]
     Indication: PRODUCT USED FOR UNKNOWN INDICATION
     Dosage: 250 MG, QD
     Route: 048
     Dates: start: 20100521, end: 20100523
  22. VITAMIN E [Concomitant]
     Indication: PRODUCT USED FOR UNKNOWN INDICATION
     Dosage: 200 MG, 2X/W
     Route: 048
     Dates: start: 20100520, end: 20100617
  23. ENOXAPARIN SODIUM [Concomitant]
     Indication: PRODUCT USED FOR UNKNOWN INDICATION
     Dosage: 120 MG, QD
     Route: 058
     Dates: start: 20100427
  24. FITOMENADION [Concomitant]
     Indication: PRODUCT USED FOR UNKNOWN INDICATION
     Dosage: 20 MG, 1X/W
     Route: 048
     Dates: start: 20100524, end: 20100621
  25. FOLIC ACID [Concomitant]
     Indication: PRODUCT USED FOR UNKNOWN INDICATION
     Dosage: 4 MG, QD
     Route: 048
     Dates: start: 20100519, end: 20100525
  26. FOLIC ACID [Concomitant]
     Dosage: 2.5 MG, QD
     Route: 040
     Dates: start: 20100526, end: 20100617
  27. FUROSEMIDE [Concomitant]
     Indication: PRODUCT USED FOR UNKNOWN INDICATION
     Dosage: 40 MG, QD
     Route: 040
     Dates: start: 20100520, end: 20100520
  28. FUROSEMIDE [Concomitant]
     Dosage: 20 MG, QD
     Route: 040
     Dates: start: 20100523, end: 20100523
  29. FUROSEMIDE [Concomitant]
     Dosage: UNK
     Dates: start: 20100529, end: 20100601
  30. FUROSEMIDE [Concomitant]
     Dosage: 180 MG, QD
     Route: 042
     Dates: start: 20100608, end: 20100608
  31. FUROSEMIDE [Concomitant]
     Dosage: 60 MG, QD
     Route: 042
     Dates: start: 20100609, end: 20100609
  32. FUROSEMIDE [Concomitant]
     Dosage: 120 MG, QD
     Route: 042
     Dates: start: 20100611, end: 20100613
  33. ROSUVASTATIN [Concomitant]
     Indication: PRODUCT USED FOR UNKNOWN INDICATION
     Dosage: 10 MG, QD
     Route: 048
     Dates: start: 20080101
  34. METHYLPREDNISOLONE ACETATE [Concomitant]
     Indication: PRODUCT USED FOR UNKNOWN INDICATION
     Dosage: 4 MG, QD
     Route: 048
     Dates: start: 20100520, end: 20100520
  35. METHYLPREDNISOLONE ACETATE [Concomitant]
     Dosage: 4 MG, QD
     Route: 048
     Dates: start: 20100524, end: 20100524
  36. MEROPENEM [Concomitant]
     Indication: PRODUCT USED FOR UNKNOWN INDICATION
     Dosage: 2 G, QD
     Route: 042
     Dates: start: 20100525, end: 20100525
  37. MEROPENEM [Concomitant]
     Dosage: 3 G, QD
     Route: 042
     Dates: start: 20100526, end: 20100617
  38. LEVOFLOXACIN [Concomitant]
     Indication: PRODUCT USED FOR UNKNOWN INDICATION
     Dosage: 500 MG, QD
     Route: 048
     Dates: start: 20100519, end: 20100525
  39. VORICONAZOLE [Concomitant]
     Indication: PRODUCT USED FOR UNKNOWN INDICATION
     Dosage: 300 MG, QD
     Route: 048
     Dates: start: 20100518, end: 20100518
  40. VORICONAZOLE [Concomitant]
     Dosage: 600 MG, QD
     Route: 048
     Dates: start: 20100520, end: 20100525
  41. VORICONAZOLE [Concomitant]
     Dosage: 640 MG, QD
     Route: 042
     Dates: start: 20100526, end: 20100621
  42. ALLOPURINOL [Concomitant]
     Indication: PRODUCT USED FOR UNKNOWN INDICATION
     Dosage: 300 MG, QD
     Route: 048
     Dates: start: 20100519, end: 20100524
  43. ACETAMINOPHEN [Concomitant]
     Indication: PRODUCT USED FOR UNKNOWN INDICATION
     Dosage: 1 G, QD
     Route: 042
     Dates: start: 20100525, end: 20100525
  44. ACETAMINOPHEN [Concomitant]
     Dosage: 1 G, QD
     Route: 042
     Dates: start: 20100530, end: 20100601
  45. ACETAMINOPHEN [Concomitant]
     Dosage: 1 G, QD
     Route: 042
     Dates: start: 20100605, end: 20100605
  46. ACETAMINOPHEN [Concomitant]
     Dosage: 4 G, QD
     Route: 042
     Dates: start: 20100608, end: 20100608
  47. ACETAMINOPHEN [Concomitant]
     Dosage: 4 G, PRN
     Route: 042
     Dates: start: 20100609, end: 20100621
  48. ALPRAZOLAM [Concomitant]
     Indication: PRODUCT USED FOR UNKNOWN INDICATION
     Dosage: 0.5 MG, QD
     Route: 048
     Dates: start: 20100522, end: 20100522
  49. ZOLPIDEM [Concomitant]
     Indication: PRODUCT USED FOR UNKNOWN INDICATION
     Dosage: 5 MG, QD
     Route: 048
     Dates: start: 20100524, end: 20100524
  50. ZOLPIDEM [Concomitant]
     Dosage: 5 MG, QD
     Route: 048
     Dates: start: 20100526, end: 20100526
  51. FLIXONASE [Concomitant]
     Indication: PRODUCT USED FOR UNKNOWN INDICATION
     Dosage: 1 SPRAY, QD
     Dates: start: 20100519
  52. CETIRIZINE HCL [Concomitant]
     Indication: PRODUCT USED FOR UNKNOWN INDICATION
     Dosage: 10 MG, QD
     Route: 048
     Dates: start: 20100518, end: 20100621
  53. BETAXOLOL [Concomitant]
     Indication: PRODUCT USED FOR UNKNOWN INDICATION
     Dosage: 0.25 %, BID
     Route: 050
     Dates: start: 20100401
  54. BIMATOPROST [Concomitant]
     Indication: PRODUCT USED FOR UNKNOWN INDICATION
     Dosage: 0.3 MG, QD
     Route: 050
     Dates: start: 20100518, end: 20100518
  55. BIMATOPROST [Concomitant]
     Dosage: 0.3 MG, QD
     Route: 050
     Dates: start: 20100520, end: 20100521
  56. BIMATOPROST [Concomitant]
     Dosage: 0.3 MG, QD
     Route: 050
     Dates: start: 20100526, end: 20100531
  57. BIMATOPROST [Concomitant]
     Dosage: 0.3 MG, QD
     Route: 050
     Dates: start: 20100606, end: 20100607
  58. BIMATOPROST [Concomitant]
     Dosage: 0.3 MG, QD
     Route: 050
     Dates: start: 20100611
  59. OMEPRAZOLE [Concomitant]
     Indication: PRODUCT USED FOR UNKNOWN INDICATION
     Dosage: 40 MG, QD
     Route: 042
     Dates: start: 20100526, end: 20100621
  60. ACYCLOVIR [Concomitant]
     Indication: PRODUCT USED FOR UNKNOWN INDICATION
     Dosage: 900 MG, QD
     Route: 042
     Dates: start: 20100529, end: 20100617
  61. LARGACTIL [Concomitant]
     Indication: PRODUCT USED FOR UNKNOWN INDICATION
     Dosage: 25 MG, QD
     Route: 042
     Dates: start: 20100528, end: 20100528
  62. HALOPERIDOL [Concomitant]
     Indication: PRODUCT USED FOR UNKNOWN INDICATION
     Dosage: 10 MG, PRN
     Route: 042
     Dates: start: 20100528, end: 20100618
  63. VANCOMYCIN [Concomitant]
     Indication: PRODUCT USED FOR UNKNOWN INDICATION
     Dosage: 1 G, QD
     Route: 042
     Dates: start: 20100603, end: 20100603
  64. VANCOMYCIN [Concomitant]
     Dosage: 2 G, QD
     Route: 042
     Dates: start: 20100604, end: 20100610
  65. VANCOMYCIN [Concomitant]
     Dosage: 1.5 G, QD
     Route: 042
     Dates: start: 20100611, end: 20100617
  66. ALBUMIN (HUMAN) [Concomitant]
     Indication: PRODUCT USED FOR UNKNOWN INDICATION
     Dosage: 20 %, QD
     Route: 042
     Dates: start: 20100608, end: 20100609
  67. ALBUMIN (HUMAN) [Concomitant]
     Dosage: 20 %, QD
     Route: 042
     Dates: start: 20100611, end: 20100611
  68. ALBUMIN (HUMAN) [Concomitant]
     Dosage: 20 %, QD
     Route: 042
     Dates: start: 20100613, end: 20100614
  69. AMLODIPINE [Concomitant]
     Indication: PRODUCT USED FOR UNKNOWN INDICATION
     Dosage: 10 MG, QD
     Route: 048
     Dates: start: 20100614, end: 20100614
  70. AMLODIPINE [Concomitant]
     Dosage: 5 MG, QD
     Route: 048
     Dates: start: 20100615
  71. PANTOPRAZOLE [Concomitant]
     Dosage: 40 MG, QD
     Route: 048
     Dates: start: 20100623

REACTIONS (1)
  - DERMATITIS EXFOLIATIVE [None]
